FAERS Safety Report 6505758-3 (Version None)
Quarter: 2009Q4

REPORT INFORMATION
  Report Type: 
  Country: None (occurrence: None)
  Receive Date: 20091218
  Receipt Date: 20091208
  Transmission Date: 20100525
  Serious: No
  Sender: FDA-Public Use
  Company Number: B0615576A

PATIENT
  Age: 40 Year
  Sex: Male

DRUGS (1)
  1. RELENZA [Suspect]
     Indication: H1N1 INFLUENZA
     Dosage: 4BLS TWICE PER DAY
     Route: 065
     Dates: start: 20091207

REACTIONS (1)
  - OVERDOSE [None]
